FAERS Safety Report 12167737 (Version 1)
Quarter: 2016Q1

REPORT INFORMATION
  Report Type: Spontaneous
  Country: US (occurrence: None)
  Receive Date: 20160309
  Receipt Date: 20160309
  Transmission Date: 20160526
  Serious: Yes (Other)
  Sender: FDA-Public Use
  Company Number: None

PATIENT
  Age: 16 Year
  Sex: Female
  Weight: 136.08 kg

DRUGS (5)
  1. CLONIDINE. [Concomitant]
     Active Substance: CLONIDINE
  2. ABILIFY [Concomitant]
     Active Substance: ARIPIPRAZOLE
  3. ABILIFY [Suspect]
     Active Substance: ARIPIPRAZOLE
     Indication: CYCLOTHYMIC DISORDER
     Dosage: 20 MG 1 PO QD   QDAY ??YEARS
     Route: 048
     Dates: start: 2008
  4. MULTI VITAMINS [Concomitant]
  5. HEMOGLOBIN [Concomitant]

REACTIONS (1)
  - Movement disorder [None]

NARRATIVE: CASE EVENT DATE: 20160303
